FAERS Safety Report 4476605-9 (Version None)
Quarter: 2004Q4

REPORT INFORMATION
  Report Type: 
  Country: None (occurrence: None)
  Receive Date: 20041013
  Receipt Date: 20040927
  Transmission Date: 20050328
  Serious: Yes (Other)
  Sender: FDA-Public Use
  Company Number: USA040773374

PATIENT
  Age: 70 Year
  Sex: Female
  Weight: 70 kg

DRUGS (14)
  1. FORTEO [Suspect]
     Indication: POSITRON EMISSION TOMOGRAM ABNORMAL
     Dosage: 20 UG/1 DAY
     Dates: start: 20040501
  2. NEURONTIN [Concomitant]
  3. GLIPIZIDE [Concomitant]
  4. METFORMIN HCL [Concomitant]
  5. PLAVIX [Concomitant]
  6. PLETAL [Concomitant]
  7. CRESTOR [Concomitant]
  8. OMEPRAZOLE [Concomitant]
  9. LORAZEPAM [Concomitant]
  10. DIPHENOXYLATE [Concomitant]
  11. AMITRIPTYLINE HCL [Concomitant]
  12. VITAMIN B COMPLEX CAP [Concomitant]
  13. VITAMIN D [Concomitant]
  14. CALCIUM [Concomitant]

REACTIONS (6)
  - ARTHRALGIA [None]
  - FEELING ABNORMAL [None]
  - MOVEMENT DISORDER [None]
  - PAIN [None]
  - PAIN IN EXTREMITY [None]
  - SKIN CANCER [None]
